FAERS Safety Report 25396443 (Version 1)
Quarter: 2025Q2

REPORT INFORMATION
  Report Type: Spontaneous
  Country: ES (occurrence: ES)
  Receive Date: 20250604
  Receipt Date: 20250604
  Transmission Date: 20250717
  Serious: Yes (Death)
  Sender: MERCK SHARP & DOHME LLC
  Company Number: ES-BAYER-2025A073405

PATIENT

DRUGS (1)
  1. VERQUVO [Suspect]
     Active Substance: VERICIGUAT

REACTIONS (1)
  - Cardiac failure [Fatal]
